FAERS Safety Report 24263381 (Version 1)
Quarter: 2024Q3

REPORT INFORMATION
  Report Type: Report from Study
  Country: IN (occurrence: IN)
  Receive Date: 20240829
  Receipt Date: 20240829
  Transmission Date: 20241016
  Serious: Yes (Other)
  Sender: MYLAN
  Company Number: IN-MYLANLABS-2024M1079583

PATIENT

DRUGS (1)
  1. METHOTREXATE [Suspect]
     Active Substance: METHOTREXATE
     Indication: Haematological malignancy
     Dosage: UNK
     Route: 037

REACTIONS (4)
  - Behaviour disorder [Unknown]
  - Movement disorder [Unknown]
  - Leukoencephalopathy [Unknown]
  - Neurotoxicity [Unknown]
